FAERS Safety Report 5387765-X (Version None)
Quarter: 2007Q3

REPORT INFORMATION
  Report Type: 
  Country: None (occurrence: None)
  Receive Date: 20070716
  Receipt Date: 20070705
  Transmission Date: 20080115
  Serious: Yes (Death)
  Sender: FDA-Public Use
  Company Number: JP-JNJFOC-20070701367

PATIENT

DRUGS (1)
  1. HALOPERIDOL [Suspect]
     Indication: DELIRIUM
     Route: 048

REACTIONS (1)
  - CEREBRAL INFARCTION [None]
